FAERS Safety Report 12239130 (Version 1)
Quarter: 2016Q2

REPORT INFORMATION
  Report Type: Spontaneous
  Country: TN (occurrence: TN)
  Receive Date: 20160405
  Receipt Date: 20160405
  Transmission Date: 20160815
  Serious: Yes (Other)
  Sender: FDA-Public Use
  Company Number: TN-ACTAVIS-2016-06853

PATIENT
  Age: 53 Year
  Sex: Male

DRUGS (2)
  1. VINORELBINE [Suspect]
     Active Substance: VINORELBINE\VINORELBINE TARTRATE
     Indication: LUNG NEOPLASM MALIGNANT
     Dosage: 25 MG, DAILY 1ST AND THE 8TH DAY
     Route: 065
  2. CISPLATIN. [Concomitant]
     Active Substance: CISPLATIN
     Indication: LUNG NEOPLASM MALIGNANT
     Dosage: 80 MG, DAILY IN THE 8TH DAY
     Route: 065

REACTIONS (3)
  - Dermatitis bullous [Recovered/Resolved]
  - Extravasation [Recovered/Resolved]
  - Skin necrosis [Recovered/Resolved]
